FAERS Safety Report 4282896-X (Version None)
Quarter: 2004Q1

REPORT INFORMATION
  Report Type: 
  Country: None (occurrence: None)
  Receive Date: 20040130
  Receipt Date: 20031007
  Transmission Date: 20041129
  Serious: Yes (Other)
  Sender: FDA-Public Use
  Company Number: US-BRISTOL-MYERS SQUIBB COMPANY-12405320

PATIENT
  Sex: Female

DRUGS (1)
  1. SERZONE [Suspect]
     Indication: DEPRESSION
     Route: 048
     Dates: start: 20031001

REACTIONS (5)
  - DEPRESSION [None]
  - FEELING COLD [None]
  - HOT FLUSH [None]
  - SUICIDAL IDEATION [None]
  - VISION BLURRED [None]
